FAERS Safety Report 14176277 (Version 1)
Quarter: 2017Q4

REPORT INFORMATION
  Report Type: Spontaneous
  Country: US (occurrence: US)
  Receive Date: 20171109
  Receipt Date: 20171109
  Transmission Date: 20180321
  Serious: No
  Sender: FDA-Public Use
  Company Number: US-009507513-1710USA007034

PATIENT
  Sex: Female

DRUGS (1)
  1. NUVARING [Suspect]
     Active Substance: ETHINYL ESTRADIOL\ETONOGESTREL
     Indication: CONTRACEPTION
     Dosage: ONE RING INSERTED CONTINUOUSLY FOR 21 DAYS
     Route: 067

REACTIONS (3)
  - Withdrawal bleed [Recovered/Resolved]
  - Device expulsion [Recovered/Resolved]
  - Device expulsion [Unknown]

NARRATIVE: CASE EVENT DATE: 2017
